FAERS Safety Report 7705994-4 (Version None)
Quarter: 2011Q3

REPORT INFORMATION
  Report Type: 
  Country: None (occurrence: None)
  Receive Date: 20110824
  Receipt Date: 20110810
  Transmission Date: 20111222
  Serious: Yes (Congenital Anomaly)
  Sender: FDA-Public Use
  Company Number: GB-MYLANLABS-2011S1017013

PATIENT

DRUGS (4)
  1. DIORALYTE /00386201/ [Concomitant]
     Indication: DIARRHOEA
     Route: 064
     Dates: start: 20110401
  2. PROCHLORPERAZINE [Concomitant]
     Indication: NAUSEA
     Route: 064
     Dates: start: 20110401
  3. VENLAFAXINE [Suspect]
     Indication: DEPRESSION
     Route: 064
     Dates: start: 20100125
  4. TRIMETHOPRIM [Concomitant]
     Indication: URINARY TRACT INFECTION
     Route: 064
     Dates: start: 20110405, end: 20110419

REACTIONS (2)
  - MATERNAL EXPOSURE DURING PREGNANCY [None]
  - POLYDACTYLY [None]
